FAERS Safety Report 11927068 (Version 1)
Quarter: 2016Q1

REPORT INFORMATION
  Report Type: Spontaneous
  Country: JP (occurrence: JP)
  Receive Date: 20160119
  Receipt Date: 20160119
  Transmission Date: 20160526
  Serious: Yes (Hospitalization, Other)
  Sender: FDA-Public Use
  Company Number: JP-PFIZER INC-2015419185

PATIENT
  Age: 72 Year
  Sex: Male

DRUGS (3)
  1. FRANDOL [Concomitant]
     Active Substance: ISOSORBIDE DINITRATE
     Indication: ANGINA PECTORIS
     Dosage: 40 MG, 1X/DAY
     Route: 062
     Dates: start: 20151118
  2. CHAMPIX [Suspect]
     Active Substance: VARENICLINE TARTRATE
     Indication: SMOKING CESSATION THERAPY
     Dosage: 1 MG, 2X/DAY
     Route: 048
     Dates: start: 20151116, end: 20151127
  3. DILTIAZEM HYDROCHLORIDE. [Concomitant]
     Active Substance: DILTIAZEM HYDROCHLORIDE
     Indication: ANGINA PECTORIS
     Dosage: 100 MG, 2X/DAY
     Route: 048
     Dates: start: 20151118

REACTIONS (1)
  - Metastases to liver [Unknown]

NARRATIVE: CASE EVENT DATE: 20151127
